FAERS Safety Report 7758571-3 (Version None)
Quarter: 2011Q3

REPORT INFORMATION
  Report Type: 
  Country: None (occurrence: None)
  Receive Date: 20110919
  Receipt Date: 20110907
  Transmission Date: 20111222
  Serious: Yes (Hospitalization, Other)
  Sender: FDA-Public Use
  Company Number: US-ELI_LILLY_AND_COMPANY-US201105004185

PATIENT
  Sex: Female

DRUGS (3)
  1. METHOTREXATE [Concomitant]
  2. FORTEO [Suspect]
     Dosage: 20 UG, QD
     Route: 058
  3. FORTEO [Suspect]
     Indication: OSTEOPOROSIS
     Dosage: 20 UG, QD
     Route: 058
     Dates: start: 20101201

REACTIONS (4)
  - ROAD TRAFFIC ACCIDENT [None]
  - PELVIC FRACTURE [None]
  - FALL [None]
  - LOSS OF CONSCIOUSNESS [None]
